FAERS Safety Report 6241573-6 (Version None)
Quarter: 2009Q2

REPORT INFORMATION
  Report Type: 
  Country: None (occurrence: None)
  Receive Date: 20090623
  Receipt Date: 20060117
  Transmission Date: 20091009
  Serious: Yes (Hospitalization, Other)
  Sender: FDA-Public Use
  Company Number: DE-ROCHE-375440

PATIENT
  Sex: Male
  Weight: 80.9 kg

DRUGS (25)
  1. DACLIZUMAB [Suspect]
     Dosage: BASELINE VISIT
     Route: 042
     Dates: start: 20040602
  2. DACLIZUMAB [Suspect]
     Dosage: WEEK TWO VISIT, FREQUENCY PER PROTOCOL
     Route: 042
     Dates: start: 20040616
  3. DACLIZUMAB [Suspect]
     Route: 042
     Dates: start: 20040630, end: 20040802
  4. MYCOPHENOLATE MOFETIL [Suspect]
     Dosage: DRUG NAME: MYCOFENOLAT MOFETIL
     Route: 048
     Dates: start: 20040602
  5. CYCLOSPORINE [Suspect]
     Dosage: DRUG NAME: SANDIMMUN OPTORAL
     Route: 048
     Dates: start: 20040603
  6. DECORTIN H [Suspect]
     Route: 048
     Dates: start: 20040602
  7. DECORTIN [Suspect]
     Route: 042
     Dates: start: 20040602
  8. DECORTIN [Suspect]
     Route: 048
     Dates: start: 20040603
  9. DILTIAZEM [Concomitant]
     Dosage: DRUG NAME: DILTIAZEM
     Route: 048
     Dates: start: 20040602
  10. PANTOZOL [Concomitant]
     Dosage: DRUG NAME: PANTOPRAZOL
     Route: 048
     Dates: start: 20040603
  11. CEFRIL [Concomitant]
     Route: 048
     Dates: start: 20040602
  12. NATRON [Concomitant]
     Route: 048
     Dates: start: 20040602
  13. L-THYROXIN 150 [Concomitant]
     Route: 048
     Dates: start: 20040602
  14. CA ACETAT [Concomitant]
     Route: 048
     Dates: start: 20040602
  15. NEBILET [Concomitant]
     Dosage: DRUG NAME: NEBIVOLOL
     Route: 048
     Dates: start: 20040607
  16. TORSEMIDE [Concomitant]
     Route: 048
     Dates: start: 20040602
  17. AQUAPHOR [Concomitant]
     Route: 048
     Dates: start: 20040602
  18. DECOSTRIOL [Concomitant]
     Route: 048
     Dates: start: 20040602
  19. VALCYTE [Concomitant]
     Dosage: DRUG NAME: VALGANCICLOVIR
     Route: 048
     Dates: start: 20040605
  20. NATRIUM BICARBONATE [Concomitant]
     Route: 048
     Dates: start: 20040602
  21. CEFUROXIME [Concomitant]
     Route: 042
     Dates: start: 20040602
  22. ENOXAPARIN SODIUM [Concomitant]
     Route: 058
     Dates: start: 20040607
  23. EPOGEN [Concomitant]
     Route: 058
     Dates: start: 20040607
  24. FLUCONAZOLE [Concomitant]
     Route: 048
     Dates: start: 20040602
  25. HEPARIN [Concomitant]
     Route: 058
     Dates: start: 20040602

REACTIONS (5)
  - ARTERIOVENOUS FISTULA SITE INFECTION [None]
  - ARTERIOVENOUS FISTULA THROMBOSIS [None]
  - CYTOMEGALOVIRUS INFECTION [None]
  - RENAL NECROSIS [None]
  - URETERIC STENOSIS [None]
